FAERS Safety Report 7530412-9 (Version None)
Quarter: 2011Q2

REPORT INFORMATION
  Report Type: 
  Country: None (occurrence: None)
  Receive Date: 20110607
  Receipt Date: 20110526
  Transmission Date: 20111010
  Serious: Yes (Other)
  Sender: FDA-Public Use
  Company Number: JP-ELI_LILLY_AND_COMPANY-JP201104003933

PATIENT
  Sex: Female

DRUGS (10)
  1. PRAVASTATIN SODIUM [Concomitant]
     Dosage: 5 MG, QD
     Route: 048
  2. FORTEO [Suspect]
     Indication: OSTEOPOROSIS
     Dosage: 20 UG, UNK
     Route: 058
     Dates: start: 20110325, end: 20110327
  3. OPALMON [Concomitant]
     Indication: SPINAL COLUMN STENOSIS
     Dosage: 1 DF, TID
     Route: 048
     Dates: start: 20051001
  4. MUCOSTA [Concomitant]
     Dosage: UNK, BID
     Route: 048
  5. GASCON [Concomitant]
     Dosage: 1 DF, TID
     Route: 048
  6. PREDNISOLONE [Concomitant]
     Dosage: 10 MG, QD
     Route: 048
  7. CORTICOSTEROIDS [Concomitant]
     Indication: COLLAGEN DISORDER
  8. METHYCOBAL [Concomitant]
     Indication: HYPOAESTHESIA
     Dosage: 1 DF, TID
     Route: 048
     Dates: start: 20060201
  9. NITOROL [Concomitant]
     Dosage: UNK, BID
     Route: 048
  10. OMEPRAZOLE [Concomitant]
     Dosage: UNK, BID
     Route: 048

REACTIONS (3)
  - C-REACTIVE PROTEIN INCREASED [None]
  - MALAISE [None]
  - DECREASED APPETITE [None]
